FAERS Safety Report 19211343 (Version 1)
Quarter: 2021Q2

REPORT INFORMATION
  Report Type: Spontaneous
  Country: US (occurrence: US)
  Receive Date: 20210501
  Receipt Date: 20210501
  Transmission Date: 20210717
  Serious: No
  Sender: FDA-Public Use
  Company Number: US-ORGANON-O2104USA001274

PATIENT
  Age: 66 Year
  Sex: Male

DRUGS (2)
  1. ELOCON [Suspect]
     Active Substance: MOMETASONE FUROATE
     Indication: CUTANEOUS T-CELL LYMPHOMA STAGE I
     Dosage: UNK
     Dates: start: 1996
  2. TAZAROTENE. [Concomitant]
     Active Substance: TAZAROTENE
     Indication: CUTANEOUS T-CELL LYMPHOMA STAGE I
     Dosage: UNK
     Dates: start: 1996

REACTIONS (1)
  - Product use in unapproved indication [Unknown]

NARRATIVE: CASE EVENT DATE: 1996
